FAERS Safety Report 9214454 (Version 1)
Quarter: 2013Q2

REPORT INFORMATION
  Report Type: Spontaneous
  Country: US (occurrence: US)
  Receive Date: 20130405
  Receipt Date: 20130405
  Transmission Date: 20140414
  Serious: No
  Sender: FDA-Public Use
  Company Number: US-009507513-1304USA002577

PATIENT
  Sex: Female

DRUGS (1)
  1. MIRALAX [Suspect]
     Indication: BOWEL PREPARATION
     Dosage: 119 G, UNKNOWN
     Route: 048

REACTIONS (3)
  - Pruritus [Unknown]
  - Wrong technique in drug usage process [Unknown]
  - Overdose [Unknown]
